FAERS Safety Report 9889248 (Version 2)
Quarter: 2014Q1

REPORT INFORMATION
  Report Type: Spontaneous
  Country: US (occurrence: US)
  Receive Date: 20140211
  Receipt Date: 20140226
  Transmission Date: 20141002
  Serious: Yes (Hospitalization, Other)
  Sender: FDA-Public Use
  Company Number: US-009507513-1402USA002566

PATIENT
  Age: 81 Year
  Sex: Female

DRUGS (11)
  1. FUROSEMIDE [Suspect]
     Indication: LOCAL SWELLING
     Dosage: 40 MG, QD
     Route: 048
  2. FUROSEMIDE [Suspect]
     Dosage: 40 UNK, UNK
     Route: 048
  3. ASPIRIN [Concomitant]
  4. CLOPIDOGREL [Concomitant]
  5. AMLODIPINE [Concomitant]
  6. ZETIA [Concomitant]
  7. NIACIN [Concomitant]
  8. LEVOTHYROXINE SODIUM [Concomitant]
  9. PANTOPRAZOLE [Concomitant]
  10. RISEDRONATE SODIUM [Concomitant]
  11. CHOLECALCIFEROL [Concomitant]

REACTIONS (1)
  - Pancreatitis [Recovering/Resolving]
